FAERS Safety Report 8716360 (Version 2)
Quarter: 2013Q4

REPORT INFORMATION
  Report Type: Spontaneous
  Country: US (occurrence: US)
  Receive Date: 20120810
  Receipt Date: 20131031
  Transmission Date: 20140711
  Serious: No
  Sender: FDA-Public Use
  Company Number: US-009507513-2012SP030504

PATIENT
  Sex: Female

DRUGS (2)
  1. CLARITIN-D-24 [Suspect]
     Indication: HYPERSENSITIVITY
     Dosage: 10 MG, ONCE
     Route: 048
     Dates: start: 2012
  2. CLARITIN-D-24 [Suspect]
     Indication: MEDICAL OBSERVATION

REACTIONS (2)
  - Feeling abnormal [Unknown]
  - No therapeutic response [Unknown]
